FAERS Safety Report 12818342 (Version 2)
Quarter: 2018Q1

REPORT INFORMATION
  Report Type: Report from Study
  Country: US (occurrence: US)
  Receive Date: 20161006
  Receipt Date: 20180215
  Transmission Date: 20180508
  Serious: Yes (Hospitalization, Other)
  Sender: FDA-Public Use
  Company Number: US-ROCHE-1177787

PATIENT
  Age: 48 Year
  Sex: Female
  Weight: 60.9 kg

DRUGS (5)
  1. VELIPARIB [Suspect]
     Active Substance: VELIPARIB
     Indication: OVARIAN EPITHELIAL CANCER
     Dosage: DAY 1-21 OF EACH CYCLE. CYCLE 1
     Route: 048
  2. VELIPARIB [Suspect]
     Active Substance: VELIPARIB
     Dosage: DAY 1-21 OF EACH CYCLE. CYCLE 2-6. LAST DOSE ON 27/NOV/2012.
     Route: 048
  3. CARBOPLATIN. [Suspect]
     Active Substance: CARBOPLATIN
     Indication: OVARIAN EPITHELIAL CANCER
     Dosage: DOSE: 6 AUC OVER 30 MIN ON DAY 1. CYCLE 1, CYCLE 2-6. LAST DOSE ON 27/NOV/2012
     Route: 042
  4. BEVACIZUMAB. [Suspect]
     Active Substance: BEVACIZUMAB
     Indication: OVARIAN EPITHELIAL CANCER
     Dosage: OVER 30-90 MINS ON DAY 1 FROM CYCLE 2 TO 6..
     Route: 042
     Dates: start: 20120702
  5. PACLITAXEL. [Suspect]
     Active Substance: PACLITAXEL
     Indication: OVARIAN EPITHELIAL CANCER
     Dosage: OVER 3 HRS ON DAY1. CYCLE 1. LAST DOSE ON 27/NOV/2012
     Route: 042

REACTIONS (7)
  - Abdominal pain [Unknown]
  - Neutrophil count decreased [Unknown]
  - Arthralgia [Unknown]
  - Platelet count decreased [Unknown]
  - Platelet count decreased [Not Recovered/Not Resolved]
  - White blood cell count decreased [Unknown]
  - Anaemia [Unknown]

NARRATIVE: CASE EVENT DATE: 20121126
